FAERS Safety Report 6846967-3 (Version None)
Quarter: 2010Q3

REPORT INFORMATION
  Report Type: 
  Country: None (occurrence: None)
  Receive Date: 20100713
  Receipt Date: 20100629
  Transmission Date: 20110219
  Serious: Yes (Hospitalization)
  Sender: FDA-Public Use
  Company Number: TOR 2010-0074

PATIENT
  Age: 57 Year
  Sex: Female

DRUGS (1)
  1. FARESTON [Suspect]
     Indication: BREAST CANCER STAGE I
     Dosage: 40 MG; ORAL
     Route: 048
     Dates: start: 20070921, end: 20100528

REACTIONS (2)
  - CHOLELITHIASIS [None]
  - HEPATIC STEATOSIS [None]
